FAERS Safety Report 14343940 (Version 1)
Quarter: 2018Q1

REPORT INFORMATION
  Report Type: Report from Study
  Country: US (occurrence: US)
  Receive Date: 20180102
  Receipt Date: 20180102
  Transmission Date: 20180509
  Serious: Yes (Hospitalization)
  Sender: FDA-Public Use
  Company Number: US-ACTELION-A-US2017-165066

PATIENT
  Age: 61 Year
  Sex: Female

DRUGS (11)
  1. PROMETHEGAN [Concomitant]
     Active Substance: PROMETHAZINE HYDROCHLORIDE
  2. CEPHALEXIN. [Concomitant]
     Active Substance: CEPHALEXIN
  3. ONDANSETRON [Concomitant]
     Active Substance: ONDANSETRON
  4. OPSUMIT [Suspect]
     Active Substance: MACITENTAN
     Indication: PULMONARY ARTERIAL HYPERTENSION
     Dosage: 10 MG, UNK
     Route: 048
     Dates: start: 20160420
  5. LIOTHYRONINE [Concomitant]
     Active Substance: LIOTHYRONINE
  6. OMEPRAZOLE. [Concomitant]
     Active Substance: OMEPRAZOLE
  7. DULOXETINE. [Concomitant]
     Active Substance: DULOXETINE
  8. SILDENAFIL. [Concomitant]
     Active Substance: SILDENAFIL
  9. FUROSEMIDE. [Concomitant]
     Active Substance: FUROSEMIDE
  10. SPIRONOLACTONE. [Concomitant]
     Active Substance: SPIRONOLACTONE
  11. FLUTICASONE. [Concomitant]
     Active Substance: FLUTICASONE

REACTIONS (1)
  - Pneumonia [Not Recovered/Not Resolved]

NARRATIVE: CASE EVENT DATE: 20171219
